FAERS Safety Report 7279891-5 (Version None)
Quarter: 2011Q1

REPORT INFORMATION
  Report Type: 
  Country: None (occurrence: None)
  Receive Date: 20110208
  Receipt Date: 20100817
  Transmission Date: 20110831
  Serious: Yes (Hospitalization)
  Sender: FDA-Public Use
  Company Number: US-BAYER-200942774NA

PATIENT
  Sex: Female
  Weight: 74.83 kg

DRUGS (5)
  1. YAZ [Suspect]
     Indication: PREMENSTRUAL SYNDROME
  2. ALBUTEROL [Concomitant]
     Dosage: UNK
     Dates: start: 20000101
  3. UNCODEABLE ^UNCLASSIFIABLE^ [Concomitant]
     Dosage: UNK
     Dates: start: 20080501
  4. YAZ [Suspect]
     Indication: ACNE
     Dosage: UNK UNK, QD
     Route: 048
     Dates: start: 20080220
  5. YASMIN [Suspect]
     Indication: PRODUCT USED FOR UNKNOWN INDICATION
     Dosage: 1 CI (DAILY DOSE), QD, ORAL
     Route: 048

REACTIONS (2)
  - INJURY [None]
  - THROMBOSIS [None]
